FAERS Safety Report 4831418-0 (Version None)
Quarter: 2005Q4

REPORT INFORMATION
  Report Type: 
  Country: None (occurrence: None)
  Receive Date: 20051118
  Receipt Date: 20050922
  Transmission Date: 20060501
  Serious: Yes (Other)
  Sender: FDA-Public Use
  Company Number: DE-BRISTOL-MYERS SQUIBB COMPANY-13139555

PATIENT
  Age: 43 Year
  Sex: Male
  Weight: 92 kg

DRUGS (5)
  1. REYATAZ [Suspect]
     Indication: HIV INFECTION
     Dates: start: 20030409
  2. HIVID [Suspect]
     Indication: HIV INFECTION
     Dates: start: 20030409
  3. ZIAGEN [Suspect]
     Indication: HIV INFECTION
     Dates: start: 20030409
  4. EPIVIR [Suspect]
     Indication: HIV INFECTION
     Dates: start: 20030409
  5. TRUVADA [Suspect]
     Dates: start: 20050401

REACTIONS (2)
  - ALANINE AMINOTRANSFERASE INCREASED [None]
  - HEPATITIS [None]
